FAERS Safety Report 7394817-1 (Version None)
Quarter: 2011Q2

REPORT INFORMATION
  Report Type: 
  Country: None (occurrence: None)
  Receive Date: 20110405
  Receipt Date: 20110330
  Transmission Date: 20111010
  Serious: Yes (Hospitalization)
  Sender: FDA-Public Use
  Company Number: A0857806A

PATIENT
  Age: 44 Year
  Sex: Male
  Weight: 83.2 kg

DRUGS (7)
  1. PRAVACHOL [Concomitant]
  2. ACTOS [Concomitant]
  3. AVANDARYL [Suspect]
     Route: 048
     Dates: start: 20060418, end: 20070613
  4. ATENOLOL [Concomitant]
  5. AVANDIA [Suspect]
     Route: 048
     Dates: start: 20060524, end: 20070613
  6. LISINOPRIL [Concomitant]
  7. METFORMIN [Concomitant]
     Dates: end: 20070601

REACTIONS (5)
  - MYOCARDIAL ISCHAEMIA [None]
  - CARDIOVASCULAR DISORDER [None]
  - CORONARY ARTERY DISEASE [None]
  - ANGINA PECTORIS [None]
  - HEART INJURY [None]
